FAERS Safety Report 8775050 (Version 2)
Quarter: 2012Q4

REPORT INFORMATION
  Report Type: 
  Country: BE (occurrence: BE)
  Receive Date: 20120908
  Receipt Date: 20120910
  Transmission Date: 20130627
  Serious: Yes (Death)
  Sender: FDA-Public Use
  Company Number: PHHY2012BE078074

PATIENT
  Age: 99 Year
  Sex: Male

DRUGS (4)
  1. ACLASTA [Suspect]
     Indication: OSTEOPOROSIS
     Dosage: 5 mg yearly
     Route: 042
     Dates: start: 2008
  2. ACLASTA [Suspect]
     Dosage: 5 mg yearly
     Route: 042
     Dates: start: 2009
  3. ACLASTA [Suspect]
     Dosage: 5 mg yearly
     Route: 042
     Dates: start: 2010
  4. ACLASTA [Suspect]
     Dosage: 5 mg yearly
     Route: 042
     Dates: start: 2011

REACTIONS (1)
  - Death [Fatal]
